FAERS Safety Report 19284917 (Version 17)
Quarter: 2022Q1

REPORT INFORMATION
  Report Type: Report from Study
  Country: PL (occurrence: PL)
  Receive Date: 20210521
  Receipt Date: 20220228
  Transmission Date: 20220424
  Serious: Yes (Hospitalization, Other)
  Sender: FDA-Public Use
  Company Number: PL-CELGENE-POL-20210503619

PATIENT
  Age: 53 Year
  Sex: Female

DRUGS (11)
  1. OZANIMOD [Suspect]
     Active Substance: OZANIMOD
     Indication: Relapsing multiple sclerosis
     Dosage: 1 MILLIGRAM
     Route: 048
     Dates: start: 20161122, end: 20190813
  2. OZANIMOD [Suspect]
     Active Substance: OZANIMOD
     Dosage: 1 MILLIGRAM
     Route: 048
     Dates: start: 20190814
  3. ACARD [Concomitant]
     Indication: Prophylaxis
     Dosage: 75 MILLIGRAM
     Route: 048
     Dates: start: 20200915
  4. CYCLO 3 FORT [Concomitant]
     Active Substance: ASCORBIC ACID\HESPERIDIN METHYLCHALCONE\RUSCUS ACULEATUS ROOT
     Indication: Inflammation
     Dosage: 150+150+100 (MILLIGRAM)
     Route: 048
     Dates: start: 20190514
  5. KETOPROFEN [Concomitant]
     Active Substance: KETOPROFEN
     Indication: Intervertebral disc degeneration
     Route: 048
     Dates: start: 20160801
  6. FERROUS SULFATE ANHYDROUS [Concomitant]
     Active Substance: FERROUS SULFATE ANHYDROUS
     Indication: Anaemia
     Dosage: 325 MILLIGRAM
     Route: 048
     Dates: start: 20170912
  7. Heparizen [Concomitant]
     Indication: Inflammation
     Dosage: 2 DOSAGE FORMS
     Route: 061
     Dates: start: 20190514
  8. LEVOTHYROXINE SODIUM [Concomitant]
     Active Substance: LEVOTHYROXINE SODIUM
     Indication: Hypothyroidism
     Dosage: .05 MILLIGRAM
     Route: 048
  9. RAMIPRIL [Concomitant]
     Active Substance: RAMIPRIL
     Indication: Hypertension
     Dosage: 5 MILLIGRAM
     Route: 048
     Dates: start: 20200818
  10. POLVERTIC [Concomitant]
     Indication: Vertigo
     Dosage: 48 MILLIGRAM
     Route: 048
     Dates: start: 20160825
  11. YASMIN [Concomitant]
     Active Substance: DROSPIRENONE\ETHINYL ESTRADIOL
     Indication: Contraception
     Dosage: 1 (TABLET DOSING UNIT)
     Route: 048
     Dates: start: 20170622

REACTIONS (1)
  - Dermatofibrosarcoma protuberans [Recovered/Resolved]

NARRATIVE: CASE EVENT DATE: 20210218
